FAERS Safety Report 24578157 (Version 1)
Quarter: 2024Q4

REPORT INFORMATION
  Report Type: Spontaneous
  Country: TR (occurrence: TR)
  Receive Date: 20241104
  Receipt Date: 20241104
  Transmission Date: 20250115
  Serious: Yes (Life-Threatening, Hospitalization, Other)
  Sender: ALKEM
  Company Number: TR-ALKEM LABORATORIES LIMITED-TR-ALKEM-2024-21996

PATIENT
  Age: 15 Year
  Sex: Female

DRUGS (1)
  1. ISONIAZID [Suspect]
     Active Substance: ISONIAZID
     Indication: Suicide attempt
     Dosage: 45 DOSAGE FORM (TABLETS) (EQUIVALENT TO 90 MG/KG)
     Route: 048

REACTIONS (8)
  - Hypersensitivity myocarditis [Recovering/Resolving]
  - Shock [Unknown]
  - Altered state of consciousness [Unknown]
  - Status epilepticus [Unknown]
  - Overdose [Unknown]
  - Toxicity to various agents [Unknown]
  - Hepatomegaly [Unknown]
  - Expired product administered [Unknown]
